FAERS Safety Report 6993204-5 (Version None)
Quarter: 2010Q3

REPORT INFORMATION
  Report Type: 
  Country: None (occurrence: None)
  Receive Date: 20100917
  Receipt Date: 20100311
  Transmission Date: 20110219
  Serious: Yes (Other)
  Sender: FDA-Public Use
  Company Number: US-ASTRAZENECA-2008UW16175

PATIENT
  Age: 16047 Day
  Sex: Female
  Weight: 66.2 kg

DRUGS (16)
  1. SEROQUEL [Suspect]
     Indication: BIPOLAR DISORDER
     Route: 048
     Dates: start: 20040123, end: 20060322
  2. SEROQUEL [Suspect]
     Dosage: 25 MG -200 MG
     Route: 048
     Dates: start: 20040607
  3. ABILIFY [Concomitant]
     Dates: start: 20070701
  4. HALDOL [Concomitant]
  5. RISPERDAL [Concomitant]
  6. THORAZINE [Concomitant]
  7. ZYPREXA [Concomitant]
     Dosage: 2.5-20MG
     Dates: start: 19980622, end: 20011005
  8. NEURONTIN [Concomitant]
     Dates: start: 20040607
  9. EPIPEN [Concomitant]
     Dosage: P.R.N
     Dates: start: 20040607
  10. ATIVAN [Concomitant]
     Dates: start: 20040607
  11. ZOLOFT [Concomitant]
     Dates: start: 20040607
  12. DEPAKOTE [Concomitant]
     Dates: start: 20040607
  13. NORTRIPTYLINE HCL [Concomitant]
     Dates: start: 20040607
  14. PREMARIN [Concomitant]
     Dates: start: 20040607
  15. DARVOCET [Concomitant]
     Dates: start: 20040607
  16. TRAMADOL [Concomitant]
     Dates: start: 20040607

REACTIONS (6)
  - DEPRESSION [None]
  - EMOTIONAL DISTRESS [None]
  - INSOMNIA [None]
  - PAIN IN EXTREMITY [None]
  - PANCREATITIS [None]
  - STRESS [None]
